FAERS Safety Report 11614757 (Version 1)
Quarter: 2015Q4

REPORT INFORMATION
  Report Type: Report from Study
  Country: TR (occurrence: TR)
  Receive Date: 20151009
  Receipt Date: 20151009
  Transmission Date: 20160304
  Serious: Yes (Other)
  Sender: FDA-Public Use
  Company Number: TR-ROCHE-1641969

PATIENT

DRUGS (1)
  1. BEVACIZUMAB [Suspect]
     Active Substance: BEVACIZUMAB
     Indication: NEOVASCULAR AGE-RELATED MACULAR DEGENERATION
     Dosage: 1.25 MG/0.05 ML
     Route: 050

REACTIONS (3)
  - Iridocyclitis [Unknown]
  - Punctate keratitis [Unknown]
  - Conjunctival haemorrhage [Unknown]
